FAERS Safety Report 22811634 (Version 8)
Quarter: 2025Q3

REPORT INFORMATION
  Report Type: Spontaneous
  Country: JP (occurrence: JP)
  Receive Date: 20230810
  Receipt Date: 20250708
  Transmission Date: 20251020
  Serious: Yes (Hospitalization, Other)
  Sender: BRISTOL-MYERS SQUIBB COMPANY
  Company Number: JP-ONO-2023JP020164

PATIENT
  Age: 64 Year
  Sex: Female

DRUGS (2)
  1. YERVOY [Suspect]
     Active Substance: IPILIMUMAB
     Indication: Metastatic renal cell carcinoma
     Route: 041
  2. OPDIVO [Suspect]
     Active Substance: NIVOLUMAB
     Indication: Metastatic renal cell carcinoma
     Route: 041

REACTIONS (4)
  - Cytokine release syndrome [Recovering/Resolving]
  - Immune-mediated hepatic disorder [Recovering/Resolving]
  - Viral upper respiratory tract infection [Unknown]
  - Adrenal insufficiency [Unknown]
